FAERS Safety Report 5012205-X (Version None)
Quarter: 2006Q2

REPORT INFORMATION
  Report Type: 
  Country: None (occurrence: None)
  Receive Date: 20060406
  Receipt Date: 20051016
  Transmission Date: 20061013
  Serious: Yes (Other)
  Sender: FDA-Public Use
  Company Number: SUS1-2005-00775

PATIENT
  Age: 5 Year
  Sex: Male
  Weight: 15.9 kg

DRUGS (3)
  1. ADDERALL 10 [Suspect]
     Dosage: 15 MG, 1X/DAY:QD; EVERY AFTERNOON
     Dates: start: 20050201
  2. ADDERALL 10 [Suspect]
     Dosage: 20 MG, 1X/DAY:QD, EVERY MORNING
     Dates: start: 20051002
  3. SEROQUEL [Concomitant]

REACTIONS (1)
  - CONVULSION [None]
